FAERS Safety Report 12781446 (Version 1)
Quarter: 2016Q3

REPORT INFORMATION
  Report Type: Spontaneous
  Country: US (occurrence: US)
  Receive Date: 20160926
  Receipt Date: 20160926
  Transmission Date: 20161109
  Serious: No
  Sender: FDA-Public Use
  Company Number: US-PFIZER INC-2016446683

PATIENT
  Age: 49 Year
  Sex: Female

DRUGS (2)
  1. MUCINEX [Suspect]
     Active Substance: GUAIFENESIN
     Indication: RHEUMATOID ARTHRITIS
  2. LYRICA [Suspect]
     Active Substance: PREGABALIN
     Indication: RHEUMATOID ARTHRITIS

REACTIONS (3)
  - Drug hypersensitivity [Unknown]
  - Tuberculin test positive [Unknown]
  - Product use issue [Unknown]

NARRATIVE: CASE EVENT DATE: 20160809
